FAERS Safety Report 12307987 (Version 1)
Quarter: 2016Q2

REPORT INFORMATION
  Report Type: Spontaneous
  Country: US (occurrence: US)
  Receive Date: 20160426
  Receipt Date: 20160426
  Transmission Date: 20160815
  Serious: No
  Sender: FDA-Public Use
  Company Number: US-ALKERMES INC.-ALK-2016-000401

PATIENT

DRUGS (2)
  1. VIVITROL [Suspect]
     Active Substance: NALTREXONE
     Indication: DRUG DEPENDENCE
     Dosage: 380 MG, QMO
     Route: 030
     Dates: start: 201512
  2. PREDNISONE. [Concomitant]
     Active Substance: PREDNISONE
     Indication: EYE DISORDER
     Dosage: UNK
     Route: 065

REACTIONS (8)
  - Hypersomnia [Recovered/Resolved]
  - Abdominal pain upper [Recovered/Resolved]
  - Myalgia [Recovered/Resolved]
  - Drug screen positive [Recovered/Resolved]
  - Decreased appetite [Recovered/Resolved]
  - Drug abuse [Unknown]
  - Drug dependence [Unknown]
  - Nausea [Recovered/Resolved]

NARRATIVE: CASE EVENT DATE: 201512
